FAERS Safety Report 8611363-5 (Version None)
Quarter: 2012Q3

REPORT INFORMATION
  Report Type: 
  Country: None (occurrence: None)
  Receive Date: 20120822
  Receipt Date: 20120813
  Transmission Date: 20120928
  Serious: Yes (Hospitalization, Other)
  Sender: FDA-Public Use
  Company Number: AU-ELI_LILLY_AND_COMPANY-AU201208003913

PATIENT
  Age: 50 Year
  Sex: Female

DRUGS (3)
  1. AVAPRO [Concomitant]
     Indication: BLOOD PRESSURE
  2. SYMBICORT [Concomitant]
     Indication: ASTHMA
  3. CYMBALTA [Suspect]
     Indication: MAJOR DEPRESSION
     Dosage: 120 MG, UNK

REACTIONS (1)
  - ARRHYTHMIA [None]
